FAERS Safety Report 22323591 (Version 1)
Quarter: 2023Q2

REPORT INFORMATION
  Report Type: Spontaneous
  Country: US (occurrence: US)
  Receive Date: 20230516
  Receipt Date: 20230516
  Transmission Date: 20230721
  Serious: Yes (Disabling, Other)
  Sender: FDA-Public Use
  Company Number: US-BoehringerIngelheim-2023-BI-236556

PATIENT
  Sex: Male

DRUGS (3)
  1. MIRAPEX ER [Suspect]
     Active Substance: PRAMIPEXOLE DIHYDROCHLORIDE
     Indication: Restless legs syndrome
     Dates: start: 2023
  2. VENTOLIN HFA [Concomitant]
     Active Substance: ALBUTEROL SULFATE
     Indication: Multiple allergies
  3. Pulmicort Flex Inhaler [Concomitant]
     Indication: Multiple allergies

REACTIONS (5)
  - Myalgia [Not Recovered/Not Resolved]
  - Suicidal ideation [Recovered/Resolved]
  - Weight increased [Not Recovered/Not Resolved]
  - Gambling [Recovered/Resolved]
  - Head discomfort [Recovered/Resolved]
